FAERS Safety Report 6419891-8 (Version None)
Quarter: 2009Q4

REPORT INFORMATION
  Report Type: 
  Country: None (occurrence: None)
  Receive Date: 20091029
  Receipt Date: 20091024
  Transmission Date: 20100525
  Serious: No
  Sender: FDA-Public Use
  Company Number: US-B.I. PHARMACEUTICALS,INC./RIDGEFIELD-2009-BP-12515BP

PATIENT
  Sex: Female
  Weight: 59 kg

DRUGS (8)
  1. ZANTAC 75 [Suspect]
     Indication: DYSPEPSIA
     Dosage: 150 MG
     Route: 048
     Dates: start: 20091024
  2. ATACAND [Concomitant]
     Indication: HYPERTENSION
  3. PREMARIN [Concomitant]
     Indication: OESTROGEN THERAPY
  4. LEVOTHYROXINE SODIUM [Concomitant]
     Indication: THYROID DISORDER
  5. SLOW MAG [Concomitant]
     Indication: MINERAL SUPPLEMENTATION
  6. CITROCAL [Concomitant]
     Indication: MINERAL SUPPLEMENTATION
  7. FLAX SEED [Concomitant]
     Indication: SUPPLEMENTATION THERAPY
  8. ASCORBIC ACID [Concomitant]
     Indication: SUPPLEMENTATION THERAPY

REACTIONS (1)
  - PRURITUS GENERALISED [None]
